FAERS Safety Report 6012889-3 (Version None)
Quarter: 2008Q4

REPORT INFORMATION
  Report Type: 
  Country: None (occurrence: None)
  Receive Date: 20081219
  Receipt Date: 20081212
  Transmission Date: 20090506
  Serious: Yes (Other)
  Sender: FDA-Public Use
  Company Number: JP-BRISTOL-MYERS SQUIBB COMPANY-14446280

PATIENT
  Age: 22 Year
  Sex: Female

DRUGS (5)
  1. VEPESID [Suspect]
     Indication: MALIGNANT MEDIASTINAL NEOPLASM
     Route: 041
  2. BRIPLATIN [Suspect]
     Indication: MALIGNANT MEDIASTINAL NEOPLASM
     Route: 041
  3. PARAPLATIN [Suspect]
     Indication: MALIGNANT MEDIASTINAL NEOPLASM
     Route: 041
  4. IFOMIDE [Suspect]
  5. BLEOMYCIN SULFATE [Concomitant]

REACTIONS (1)
  - INTERSTITIAL LUNG DISEASE [None]
